FAERS Safety Report 20145867 (Version 1)
Quarter: 2021Q4

REPORT INFORMATION
  Report Type: Spontaneous
  Country: US (occurrence: None)
  Receive Date: 20211203
  Receipt Date: 20211203
  Transmission Date: 20220303
  Serious: No
  Sender: FDA-Public Use
  Company Number: None

PATIENT
  Age: 73 Year
  Sex: Male
  Weight: 85.28 kg

DRUGS (1)
  1. SEMAGLUTIDE [Suspect]
     Active Substance: SEMAGLUTIDE
     Indication: Diabetes mellitus
     Dosage: OTHER STRENGTH : 1MG/0.75ML, 1.5ML;?FREQUENCY : WEEKLY;?
     Route: 058
     Dates: start: 20201101, end: 20211119

REACTIONS (1)
  - Retinopathy [None]

NARRATIVE: CASE EVENT DATE: 20211119
